FAERS Safety Report 6745235-8 (Version None)
Quarter: 2010Q2

REPORT INFORMATION
  Report Type: 
  Country: None (occurrence: None)
  Receive Date: 20100528
  Receipt Date: 20100519
  Transmission Date: 20101027
  Serious: No
  Sender: FDA-Public Use
  Company Number: US-BIOGENIDEC-2010BI015517

PATIENT
  Age: 42 Year
  Sex: Female

DRUGS (1)
  1. TYSABRI [Suspect]
     Indication: MULTIPLE SCLEROSIS
     Route: 042
     Dates: start: 20100312

REACTIONS (5)
  - ARTHRITIS INFECTIVE [None]
  - FALL [None]
  - GAIT DISTURBANCE [None]
  - JOINT INJURY [None]
  - TRAUMATIC HAEMORRHAGE [None]
